FAERS Safety Report 9909140 (Version 1)
Quarter: 2014Q1

REPORT INFORMATION
  Report Type: Spontaneous
  Country: US (occurrence: US)
  Receive Date: 20140219
  Receipt Date: 20140219
  Transmission Date: 20141002
  Serious: Yes (Other)
  Sender: FDA-Public Use
  Company Number: US-SA-2014SA017808

PATIENT
  Age: 84 Year
  Sex: Female

DRUGS (7)
  1. FUROSEMIDE [Suspect]
     Indication: CARDIAC FAILURE
     Route: 065
  2. LISINOPRIL [Suspect]
     Indication: CARDIAC FAILURE
     Route: 065
  3. CITALOPRAM [Suspect]
     Indication: DEPRESSION
     Route: 065
  4. POTASSIUM [Concomitant]
  5. ASPIRIN [Concomitant]
  6. COLACE [Concomitant]
  7. SIMVASTATIN [Concomitant]

REACTIONS (11)
  - Hyponatraemia [Unknown]
  - Mental status changes [Unknown]
  - Confusional state [Unknown]
  - Memory impairment [Unknown]
  - Constipation [Unknown]
  - Abdominal pain [Unknown]
  - Gastrointestinal sounds abnormal [Unknown]
  - Abdominal distension [Unknown]
  - Fatigue [Unknown]
  - Orthostatic hypotension [Unknown]
  - Fall [Unknown]
